FAERS Safety Report 23901615 (Version 1)
Quarter: 2024Q2

REPORT INFORMATION
  Report Type: Spontaneous
  Country: US (occurrence: None)
  Receive Date: 20240526
  Receipt Date: 20240526
  Transmission Date: 20240716
  Serious: No
  Sender: FDA-Public Use
  Company Number: US-ROCHE-3314804

PATIENT
  Sex: Female
  Weight: 141.25 kg

DRUGS (1)
  1. OCREVUS [Suspect]
     Active Substance: OCRELIZUMAB
     Indication: Relapsing-remitting multiple sclerosis
     Route: 042
     Dates: start: 20220830

REACTIONS (7)
  - Balance disorder [Unknown]
  - Vertigo [Unknown]
  - Asthenia [Unknown]
  - Hypotension [Unknown]
  - Pallor [Unknown]
  - Hyperhidrosis [Unknown]
  - Muscular weakness [Unknown]
